FAERS Safety Report 18041835 (Version 1)
Quarter: 2020Q3

REPORT INFORMATION
  Report Type: Spontaneous
  Country: NL (occurrence: NL)
  Receive Date: 20200720
  Receipt Date: 20200720
  Transmission Date: 20201103
  Serious: Yes (Other)
  Sender: FDA-Public Use
  Company Number: NL-TEVA-2020-NL-1801250

PATIENT
  Age: 8 Year
  Sex: Male
  Weight: 26.6 kg

DRUGS (3)
  1. LINEZOLID (TABLET, 300 MG) [Suspect]
     Active Substance: LINEZOLID
     Indication: PRODUCT USED FOR UNKNOWN INDICATION
     Dosage: 300 MG,2 DD 300 MG, THERAPY END DATE :ASKU
     Dates: start: 20200417
  2. AZYTROMYCINE [Concomitant]
     Dosage: 250 MG,1 DD 250 MG,THERAPY START DATE: ASKU, THERAPY END DATE:ASKU
  3. PNEUMO 23 INJVLST WWSP 0,5ML ? NON?CURRENT DRUG / PNEUMOKOKKENVACCIN 2 [Concomitant]
     Dosage: 1 DOSAGE FORMS DAILY; THERAPY END DATE :ASKU
     Dates: start: 20200304

REACTIONS (2)
  - Transaminases increased [Recovering/Resolving]
  - Neutropenia [Recovered/Resolved]

NARRATIVE: CASE EVENT DATE: 20200325
